FAERS Safety Report 17828676 (Version 3)
Quarter: 2021Q4

REPORT INFORMATION
  Report Type: Report from Study
  Country: FR (occurrence: FR)
  Receive Date: 20200527
  Receipt Date: 20211012
  Transmission Date: 20220303
  Serious: Yes (Death, Life-Threatening, Hospitalization)
  Sender: FDA-Public Use
  Company Number: FR-002147023-NVSC2020FR143749

PATIENT

DRUGS (1)
  1. RUXOLITINIB [Suspect]
     Active Substance: RUXOLITINIB
     Indication: Myelofibrosis
     Dosage: 50 MG DAILY
     Route: 048
     Dates: start: 20190516

REACTIONS (6)
  - Renal impairment [Unknown]
  - Malignant neoplasm progression [Fatal]
  - Myelofibrosis [Fatal]
  - Bladder transitional cell carcinoma [Not Recovered/Not Resolved]
  - General physical health deterioration [Recovered/Resolved]
  - Anaemia [Recovered/Resolved]

NARRATIVE: CASE EVENT DATE: 20190718
